FAERS Safety Report 7868162-1 (Version None)
Quarter: 2011Q4

REPORT INFORMATION
  Report Type: 
  Country: None (occurrence: None)
  Receive Date: 20111028
  Receipt Date: 20111021
  Transmission Date: 20120403
  Serious: Yes (Other)
  Sender: FDA-Public Use
  Company Number: US-ABBOTT-11P-163-0868281-00

PATIENT
  Sex: Female
  Weight: 104.42 kg

DRUGS (7)
  1. HUMIRA [Suspect]
     Route: 058
     Dates: start: 20110601, end: 20110801
  2. HUMIRA [Suspect]
     Dosage: 2 DOSES
     Dates: start: 20110901, end: 20111001
  3. HUMIRA [Suspect]
     Indication: HIDRADENITIS
     Route: 058
     Dates: start: 20101001, end: 20110501
  4. METFORMIN [Concomitant]
     Indication: DIABETES MELLITUS
  5. TOPAMAX [Concomitant]
     Indication: MIGRAINE
  6. MERINAX [Concomitant]
     Indication: CONTRACEPTION
  7. GEMFIBROZIL [Concomitant]
     Indication: BLOOD TRIGLYCERIDES INCREASED

REACTIONS (5)
  - HIDRADENITIS [None]
  - TUBERCULOSIS [None]
  - MIGRAINE [None]
  - CELLULITIS [None]
  - FATIGUE [None]
